FAERS Safety Report 8469805-4 (Version None)
Quarter: 2012Q2

REPORT INFORMATION
  Report Type: 
  Country: None (occurrence: None)
  Receive Date: 20120626
  Receipt Date: 20120621
  Transmission Date: 20120825
  Serious: No
  Sender: FDA-Public Use
  Company Number: US-MERCK-1205USA05201

PATIENT
  Age: 77 Year
  Sex: Male

DRUGS (7)
  1. FERROUS SULFATE [Concomitant]
     Route: 048
     Dates: start: 20101216
  2. POTASSIUM CHLORIDE [Concomitant]
     Route: 048
     Dates: start: 20110408
  3. PROSCAR [Concomitant]
     Route: 048
     Dates: start: 20101216
  4. FOLIC ACID [Concomitant]
     Route: 048
     Dates: start: 20101216
  5. DECADRON [Suspect]
     Indication: NEUROPATHY PERIPHERAL
     Route: 048
  6. PROCHLORPERAZINE MALEATE [Concomitant]
     Indication: NAUSEA
     Route: 048
     Dates: start: 20110330
  7. PROCHLORPERAZINE MALEATE [Concomitant]
     Indication: VOMITING
     Route: 048
     Dates: start: 20110330

REACTIONS (1)
  - MENTAL STATUS CHANGES [None]
